FAERS Safety Report 4587190-5 (Version None)
Quarter: 2005Q1

REPORT INFORMATION
  Report Type: 
  Country: None (occurrence: None)
  Receive Date: 20050215
  Receipt Date: 20050131
  Transmission Date: 20050727
  Serious: Yes (Death)
  Sender: FDA-Public Use
  Company Number: 05H-163-0289585-00

PATIENT
  Age: 68 Year
  Sex: Female

DRUGS (2)
  1. MORPHINE SULFATE [Suspect]
     Indication: POST PROCEDURAL PAIN
     Dosage: PCA RATE, AS REQUIRED (PRN), INTRAVENOUS
     Route: 042
     Dates: start: 20041125, end: 20041126
  2. PETHIDINE HYDROCHLORIDE [Concomitant]

REACTIONS (5)
  - CARDIO-RESPIRATORY ARREST [None]
  - COMA [None]
  - MEDICATION ERROR [None]
  - OVERDOSE [None]
  - THERAPEUTIC AGENT TOXICITY [None]
